FAERS Safety Report 15898508 (Version 1)
Quarter: 2019Q1

REPORT INFORMATION
  Report Type: Spontaneous
  Country: FR (occurrence: FR)
  Receive Date: 20190201
  Receipt Date: 20190201
  Transmission Date: 20190417
  Serious: Yes (Hospitalization)
  Sender: FDA-Public Use
  Company Number: FR-ACCORD-105026

PATIENT
  Age: 71 Year
  Sex: Male
  Weight: 73 kg

DRUGS (3)
  1. CARBOPLATIN ACCORD [Suspect]
     Active Substance: CARBOPLATIN
     Indication: PHARYNGEAL CANCER
     Dosage: 10 MG / ML,
     Route: 042
  2. DOCETAXEL ACCORD [Suspect]
     Active Substance: DOCETAXEL
     Indication: PHARYNGEAL CANCER
     Route: 042
     Dates: start: 20180515, end: 20180515
  3. FLUOROURACIL PFIZER [Suspect]
     Active Substance: FLUOROURACIL
     Indication: PHARYNGEAL CANCER
     Route: 042
     Dates: start: 20180515, end: 20180515

REACTIONS (3)
  - Pseudomonal sepsis [Recovered/Resolved]
  - Agranulocytosis [Recovered/Resolved]
  - Stomatitis [Recovering/Resolving]

NARRATIVE: CASE EVENT DATE: 20180522
